FAERS Safety Report 6268302-4 (Version None)
Quarter: 2009Q3

REPORT INFORMATION
  Report Type: 
  Country: None (occurrence: None)
  Receive Date: 20090715
  Receipt Date: 20090708
  Transmission Date: 20100115
  Serious: Yes (Other)
  Sender: FDA-Public Use
  Company Number: US-ELI_LILLY_AND_COMPANY-US200907001564

PATIENT
  Sex: Female

DRUGS (11)
  1. FORTEO [Suspect]
     Dosage: UNK, UNK
     Dates: start: 20080101
  2. TRAMADOL HCL [Concomitant]
  3. HYDROCHLOROTHIAZIDE [Concomitant]
  4. AMLODIPINE [Concomitant]
  5. PRAVASTATIN [Concomitant]
  6. DETROL [Concomitant]
  7. CALCIUM CITRATE W/VITAMIN D NOS [Concomitant]
  8. ASPIRIN [Concomitant]
  9. METOPROLOL TARTRATE [Concomitant]
  10. LISINOPRIL [Concomitant]
  11. OXYBUTYNIN CHLORIDE [Concomitant]

REACTIONS (6)
  - DECUBITUS ULCER [None]
  - GASTRIC HAEMORRHAGE [None]
  - HAEMATOCHEZIA [None]
  - MUSCULAR WEAKNESS [None]
  - VASCULAR RUPTURE [None]
  - WEIGHT DECREASED [None]
